FAERS Safety Report 19528487 (Version 5)
Quarter: 2021Q3

REPORT INFORMATION
  Report Type: Report from Study
  Country: US (occurrence: US)
  Receive Date: 20210713
  Receipt Date: 20210910
  Transmission Date: 20211014
  Serious: Yes (Hospitalization, Other)
  Sender: FDA-Public Use
  Company Number: US-B.I. PHARMACEUTICALS,INC./RIDGEFIELD-2020-MR-044110

PATIENT
  Age: 69 Year
  Sex: Female

DRUGS (2)
  1. OFEV [Suspect]
     Active Substance: NINTEDANIB
     Indication: INTERSTITIAL LUNG DISEASE
     Dosage: 150MG QD
     Route: 048
     Dates: start: 20210513
  2. OFEV [Suspect]
     Active Substance: NINTEDANIB
     Indication: IDIOPATHIC PULMONARY FIBROSIS
     Dosage: 150MG PO BID
     Route: 048
     Dates: start: 20200803, end: 20210512

REACTIONS (27)
  - Intestinal obstruction [Not Recovered/Not Resolved]
  - Confusional state [Recovered/Resolved]
  - Respiratory tract infection [Unknown]
  - Abdominal distension [Not Recovered/Not Resolved]
  - Illness [Unknown]
  - Fatigue [Unknown]
  - Dehydration [Recovered/Resolved]
  - Abdominal discomfort [Not Recovered/Not Resolved]
  - Dyspnoea [Not Recovered/Not Resolved]
  - Abdominal pain upper [Not Recovered/Not Resolved]
  - Muscle spasms [Not Recovered/Not Resolved]
  - Diarrhoea [Recovering/Resolving]
  - Diarrhoea [Not Recovered/Not Resolved]
  - Gastric disorder [Unknown]
  - Abdominal pain upper [Unknown]
  - Diarrhoea [Unknown]
  - Nausea [Not Recovered/Not Resolved]
  - Peripheral swelling [Unknown]
  - Ileus [Unknown]
  - Chromaturia [Not Recovered/Not Resolved]
  - Ileus [Not Recovered/Not Resolved]
  - Pain in extremity [Unknown]
  - Gastrointestinal infection [Not Recovered/Not Resolved]
  - Oxygen saturation decreased [Recovered/Resolved]
  - Bronchitis [Unknown]
  - Impaired gastric emptying [Unknown]
  - Cough [Unknown]

NARRATIVE: CASE EVENT DATE: 20200803
